FAERS Safety Report 9255100 (Version 1)
Quarter: 2013Q2

REPORT INFORMATION
  Report Type: Spontaneous
  Country: US (occurrence: US)
  Receive Date: 20130425
  Receipt Date: 20130425
  Transmission Date: 20140414
  Serious: No
  Sender: FDA-Public Use
  Company Number: US-PFIZER INC-2013127315

PATIENT
  Sex: Female

DRUGS (4)
  1. CELEBREX [Suspect]
     Indication: ARTHRITIS
     Dosage: UNK
  2. IBUPROFEN [Suspect]
     Indication: ARTHRITIS
     Dosage: UNK
  3. MOBIC [Suspect]
     Indication: ARTHRITIS
     Dosage: UNK
  4. LODINE [Suspect]
     Indication: ARTHRITIS
     Dosage: UNK

REACTIONS (1)
  - Abdominal discomfort [Unknown]
